FAERS Safety Report 5699531-6 (Version None)
Quarter: 2008Q2

REPORT INFORMATION
  Report Type: 
  Country: None (occurrence: None)
  Receive Date: 20080410
  Receipt Date: 20080401
  Transmission Date: 20081010
  Serious: Yes (Death, Hospitalization)
  Sender: FDA-Public Use
  Company Number: US-JNJFOC-20080400881

PATIENT
  Sex: Male

DRUGS (2)
  1. REMICADE [Suspect]
     Indication: IRRITABLE BOWEL SYNDROME
     Route: 042
  2. PREDNISONE [Concomitant]
     Dosage: HIGH DOSES

REACTIONS (2)
  - ANAEMIA [None]
  - DEATH [None]
